FAERS Safety Report 19668822 (Version 4)
Quarter: 2021Q4

REPORT INFORMATION
  Report Type: Report from Study
  Country: US (occurrence: US)
  Receive Date: 20210806
  Receipt Date: 20211213
  Transmission Date: 20220303
  Serious: Yes (Death, Other)
  Sender: FDA-Public Use
  Company Number: US-GILEAD-2021-0542690

PATIENT
  Age: 8 Year
  Sex: Male
  Weight: 23.9 kg

DRUGS (15)
  1. BREXUCABTAGENE AUTOLEUCEL [Suspect]
     Active Substance: BREXUCABTAGENE AUTOLEUCEL
     Indication: Burkitt^s lymphoma
     Dosage: 40 ML, ONCE
     Route: 042
     Dates: start: 20210723, end: 20210723
  2. FLUDARABINE [Suspect]
     Active Substance: FLUDARABINE PHOSPHATE
     Indication: Bone marrow conditioning regimen
     Dosage: 23 MG
     Route: 042
     Dates: start: 20210719, end: 20210721
  3. CYCLOPHOSPHAMIDE [Suspect]
     Active Substance: CYCLOPHOSPHAMIDE
     Indication: Bone marrow conditioning regimen
     Dosage: 830 MG
     Route: 042
     Dates: start: 20210721
  4. MESNA [Suspect]
     Active Substance: MESNA
     Indication: Bone marrow conditioning regimen
     Dosage: 165 MG
     Route: 042
     Dates: start: 20210721
  5. CARBOPLATIN [Suspect]
     Active Substance: CARBOPLATIN
     Indication: Burkitt^s lymphoma
     Dosage: UNK
     Route: 065
     Dates: start: 20210708
  6. PENTAMIDINE [Concomitant]
     Active Substance: PENTAMIDINE
  7. MEROPENEM [Concomitant]
     Active Substance: MEROPENEM
     Indication: Pyrexia
  8. CEFEPIME [Concomitant]
     Active Substance: CEFEPIME HYDROCHLORIDE
     Indication: Neutropenia
  9. CEFEPIME [Concomitant]
     Active Substance: CEFEPIME HYDROCHLORIDE
     Indication: Pyrexia
  10. CALCIUM [Concomitant]
     Active Substance: CALCIUM
  11. ACYCLOVIR [Concomitant]
     Active Substance: ACYCLOVIR
     Indication: Prophylaxis
  12. BACTRIM [Concomitant]
     Active Substance: SULFAMETHOXAZOLE\TRIMETHOPRIM
  13. ETOPOSIDE [Suspect]
     Active Substance: ETOPOSIDE
  14. IFOSFAMIDE [Suspect]
     Active Substance: IFOSFAMIDE
  15. MESNA [Suspect]
     Active Substance: MESNA

REACTIONS (2)
  - Burkitt^s lymphoma [Fatal]
  - Mucosal inflammation [Not Recovered/Not Resolved]

NARRATIVE: CASE EVENT DATE: 20210730
